FAERS Safety Report 4933945-4 (Version None)
Quarter: 2006Q1

REPORT INFORMATION
  Report Type: 
  Country: None (occurrence: None)
  Receive Date: 20060303
  Receipt Date: 20060221
  Transmission Date: 20060701
  Serious: No
  Sender: FDA-Public Use
  Company Number: TPA2006A00312

PATIENT
  Age: 59 Year
  Sex: Female
  Weight: 54.4316 kg

DRUGS (2)
  1. ROZEREM [Suspect]
     Indication: INSOMNIA
     Dosage: SEE IMAGE, PER ORAL
     Route: 048
     Dates: start: 20060217, end: 20060219
  2. ROZEREM [Suspect]
     Indication: INSOMNIA
     Dosage: SEE IMAGE, PER ORAL
     Route: 048
     Dates: start: 20060215

REACTIONS (1)
  - DRUG INEFFECTIVE [None]
